FAERS Safety Report 5158937-4 (Version None)
Quarter: 2006Q4

REPORT INFORMATION
  Report Type: 
  Country: None (occurrence: None)
  Receive Date: 20061128
  Receipt Date: 20050407
  Transmission Date: 20070319
  Serious: No
  Sender: FDA-Public Use
  Company Number: US-BRISTOL-MYERS SQUIBB COMPANY-12927117

PATIENT
  Age: 80 Year
  Sex: Female
  Weight: 57 kg

DRUGS (1)
  1. CAPOZIDE 25/15 [Suspect]
     Indication: HYPERTENSION
     Dosage: 1 AT MORNING, 1 AT NIGHT
     Dates: start: 19950101

REACTIONS (2)
  - DIZZINESS [None]
  - VERTIGO [None]
